FAERS Safety Report 15229522 (Version 7)
Quarter: 2020Q1

REPORT INFORMATION
  Report Type: Spontaneous
  Country: US (occurrence: US)
  Receive Date: 20180802
  Receipt Date: 20200325
  Transmission Date: 20200409
  Serious: Yes (Other)
  Sender: FDA-Public Use
  Company Number: US-BRISTOL-MYERS SQUIBB COMPANY-BMS-2018-069762

PATIENT
  Sex: Female
  Weight: 60.3 kg

DRUGS (1)
  1. ORENCIA [Suspect]
     Active Substance: ABATACEPT
     Indication: RHEUMATOID ARTHRITIS
     Dosage: 125 MG, QWK
     Route: 058
     Dates: start: 201805

REACTIONS (8)
  - Pain [Unknown]
  - Weight increased [Unknown]
  - Swelling [Unknown]
  - Respiratory tract congestion [Unknown]
  - Cardiac disorder [Unknown]
  - Nasal discomfort [Unknown]
  - Cough [Unknown]
  - Bronchitis [Unknown]
